FAERS Safety Report 7715884-9 (Version None)
Quarter: 2011Q3

REPORT INFORMATION
  Report Type: 
  Country: None (occurrence: None)
  Receive Date: 20110829
  Receipt Date: 20110829
  Transmission Date: 20111222
  Serious: No
  Sender: FDA-Public Use
  Company Number: None

PATIENT
  Sex: Female
  Weight: 74.842 kg

DRUGS (1)
  1. RECLAST [Suspect]
     Indication: OSTEOPOROSIS
     Dosage: -?-
     Route: 042

REACTIONS (15)
  - NAUSEA [None]
  - PAIN IN EXTREMITY [None]
  - HYPERHIDROSIS [None]
  - UNEVALUABLE EVENT [None]
  - ARTHRALGIA [None]
  - FATIGUE [None]
  - BACK PAIN [None]
  - MUSCULOSKELETAL STIFFNESS [None]
  - NECK PAIN [None]
  - RASH [None]
  - CHILLS [None]
  - TREMOR [None]
  - OEDEMA PERIPHERAL [None]
  - GAIT DISTURBANCE [None]
  - HYPERSOMNIA [None]
